FAERS Safety Report 4728742-9 (Version None)
Quarter: 2005Q3

REPORT INFORMATION
  Report Type: 
  Country: None (occurrence: None)
  Receive Date: 20050729
  Receipt Date: 20050722
  Transmission Date: 20060218
  Serious: Yes (Hospitalization)
  Sender: FDA-Public Use
  Company Number: US-GLAXOSMITHKLINE-A0567838A

PATIENT
  Age: 60 Year
  Sex: Female
  Weight: 90 kg

DRUGS (6)
  1. TOPOTECAN [Suspect]
     Indication: CERVIX CARCINOMA STAGE III
     Dosage: .75MGM2 CYCLIC
     Route: 042
     Dates: start: 19991220
  2. CISPLATIN [Suspect]
     Indication: CERVIX CARCINOMA
     Dosage: 50MGM2 CYCLIC
     Route: 042
     Dates: start: 19991220
  3. HUMULIN [Concomitant]
  4. PROZAC [Concomitant]
  5. CARDIZEM [Concomitant]
  6. PRINIVIL [Concomitant]

REACTIONS (8)
  - ABDOMINAL PAIN [None]
  - BACK PAIN [None]
  - BLOOD MAGNESIUM DECREASED [None]
  - CONSTIPATION [None]
  - HAEMATURIA [None]
  - PROCTITIS [None]
  - RECTAL HAEMORRHAGE [None]
  - RECTAL ULCER [None]
